FAERS Safety Report 9904179 (Version 1)
Quarter: 2014Q1

REPORT INFORMATION
  Report Type: Spontaneous
  Country: US (occurrence: US)
  Receive Date: 20140218
  Receipt Date: 20140218
  Transmission Date: 20141002
  Serious: No
  Sender: FDA-Public Use
  Company Number: US-BIOGENIDEC-2014BI014317

PATIENT
  Age: 40 Year
  Sex: Female
  Weight: 48 kg

DRUGS (7)
  1. TECFIDERA [Suspect]
     Indication: MULTIPLE SCLEROSIS
     Route: 048
     Dates: start: 201308
  2. NEURONTIN [Concomitant]
  3. NEURONTIN [Concomitant]
     Route: 048
  4. ONDANSETRON [Concomitant]
     Route: 048
  5. FROVATRIPTAN [Concomitant]
     Route: 048
  6. MIDRIN [Concomitant]
     Route: 048
  7. NORCO [Concomitant]
     Route: 048

REACTIONS (8)
  - Paraesthesia [Unknown]
  - Musculoskeletal stiffness [Unknown]
  - General symptom [Unknown]
  - Pain [Unknown]
  - Fatigue [Unknown]
  - Headache [Unknown]
  - Flushing [Not Recovered/Not Resolved]
  - Diarrhoea [Not Recovered/Not Resolved]
